FAERS Safety Report 9840099 (Version 2)
Quarter: 2014Q1

REPORT INFORMATION
  Report Type: Spontaneous
  Country: US (occurrence: US)
  Receive Date: 20140124
  Receipt Date: 20140226
  Transmission Date: 20141002
  Serious: No
  Sender: FDA-Public Use
  Company Number: US-009507513-1401USA010433

PATIENT
  Age: 76 Year
  Sex: Female

DRUGS (1)
  1. ASMANEX TWISTHALER [Suspect]
     Indication: ASTHMA
     Dosage: UNK UNK, BID
     Route: 055
     Dates: start: 201201

REACTIONS (4)
  - Cough [Recovered/Resolved]
  - Drug dose omission [Unknown]
  - Product packaging quantity issue [Unknown]
  - Product quality issue [Unknown]
